FAERS Safety Report 5199329-1 (Version None)
Quarter: 2006Q4

REPORT INFORMATION
  Report Type: 
  Country: None (occurrence: None)
  Receive Date: 20060919
  Receipt Date: 20060530
  Transmission Date: 20070319
  Serious: Yes (Other)
  Sender: FDA-Public Use
  Company Number: BDI-008297

PATIENT
  Age: 28 Year
  Sex: Female
  Weight: 72.27 kg

DRUGS (2)
  1. MULTIHANCE [Suspect]
     Indication: CONVULSION
     Dosage: 16 ML ONCE IV
     Route: 042
     Dates: start: 20060526, end: 20060526
  2. MULTIHANCE [Suspect]
     Indication: NUCLEAR MAGNETIC RESONANCE IMAGING BRAIN
     Dosage: 16 ML ONCE IV
     Route: 042
     Dates: start: 20060526, end: 20060526

REACTIONS (1)
  - ANAPHYLACTOID REACTION [None]
